FAERS Safety Report 20623355 (Version 1)
Quarter: 2022Q1

REPORT INFORMATION
  Report Type: Other
  Country: US (occurrence: US)
  Receive Date: 20220322
  Receipt Date: 20220322
  Transmission Date: 20220423
  Serious: Yes (Hospitalization, Other)
  Sender: FDA-Public Use
  Company Number: US-HLS-202200277

PATIENT
  Age: 38 Year
  Sex: Male

DRUGS (1)
  1. CLOZAPINE [Suspect]
     Active Substance: CLOZAPINE
     Indication: Schizophrenia
     Dosage: NIGHTLY, THE DOSE WAS REDUCED TO 200MG,THEN INCREASED AT 350MG.
     Route: 065

REACTIONS (13)
  - Hallucination, auditory [Recovered/Resolved]
  - C-reactive protein increased [Recovered/Resolved]
  - Fatigue [Recovered/Resolved]
  - Pyrexia [Recovered/Resolved]
  - Malaise [Recovered/Resolved]
  - Myalgia [Recovered/Resolved]
  - Myocardial oedema [Recovered/Resolved]
  - Palpitations [Recovered/Resolved]
  - Paranoia [Recovered/Resolved]
  - Tobacco user [Recovered/Resolved]
  - Tachycardia [Recovered/Resolved]
  - Myocarditis [Recovered/Resolved]
  - White blood cell count increased [Recovered/Resolved]
